FAERS Safety Report 5865825-4 (Version None)
Quarter: 2008Q3

REPORT INFORMATION
  Report Type: 
  Country: None (occurrence: None)
  Receive Date: 20080829
  Receipt Date: 20080825
  Transmission Date: 20090109
  Serious: Yes (Hospitalization)
  Sender: FDA-Public Use
  Company Number: ES-AVENTIS-200818080GDDC

PATIENT
  Age: 80 Year
  Sex: Female

DRUGS (6)
  1. LANTUS [Suspect]
     Route: 058
     Dates: start: 20070917, end: 20071121
  2. OMEPRAZOLE [Suspect]
     Dates: start: 20070518, end: 20071121
  3. ASPIRIN [Suspect]
     Dates: start: 20021118, end: 20071121
  4. TRAZODONE HYDROCHLORIDE [Suspect]
     Route: 048
     Dates: start: 20070615, end: 20071121
  5. MEMANTINE HCL [Suspect]
     Route: 048
     Dates: start: 20070615, end: 20071121
  6. EXELON                             /01383202/ [Suspect]
     Route: 048
     Dates: start: 20021118, end: 20071121

REACTIONS (1)
  - HEPATITIS TOXIC [None]
